FAERS Safety Report 15839541 (Version 1)
Quarter: 2019Q1

REPORT INFORMATION
  Report Type: Spontaneous
  Country: US (occurrence: US)
  Receive Date: 20190117
  Receipt Date: 20190117
  Transmission Date: 20190417
  Serious: Yes (Hospitalization, Other)
  Sender: FDA-Public Use
  Company Number: US-OTSUKA-2018_019830

PATIENT
  Sex: Male

DRUGS (17)
  1. EFFEXOR [Concomitant]
     Active Substance: VENLAFAXINE HYDROCHLORIDE
     Indication: PRODUCT USED FOR UNKNOWN INDICATION
     Dosage: 50 MG, BID
     Route: 048
  2. ABILIFY [Suspect]
     Active Substance: ARIPIPRAZOLE
     Indication: BIPOLAR DISORDER
  3. ABILIFY [Suspect]
     Active Substance: ARIPIPRAZOLE
     Indication: POST-TRAUMATIC STRESS DISORDER
  4. CITALOPRAM [Concomitant]
     Active Substance: CITALOPRAM HYDROBROMIDE
     Indication: PRODUCT USED FOR UNKNOWN INDICATION
     Dosage: 40 MG, QD
     Route: 048
  5. NEXIUM [Concomitant]
     Active Substance: ESOMEPRAZOLE MAGNESIUM
     Indication: PRODUCT USED FOR UNKNOWN INDICATION
     Dosage: 40 MG, QD (BEFORE BREAKFAST)
     Route: 048
  6. PRAVACHOL [Concomitant]
     Active Substance: PRAVASTATIN SODIUM
     Indication: PRODUCT USED FOR UNKNOWN INDICATION
     Dosage: 80 MG, QD
     Route: 048
  7. ZANTAC [Concomitant]
     Active Substance: RANITIDINE HYDROCHLORIDE
     Indication: PRODUCT USED FOR UNKNOWN INDICATION
     Dosage: 150 MG, QD (BEDTIME)
     Route: 048
  8. ABILIFY [Suspect]
     Active Substance: ARIPIPRAZOLE
     Indication: PERSONALITY DISORDER
  9. CLONIDINE HCL [Concomitant]
     Active Substance: CLONIDINE HYDROCHLORIDE
     Indication: PRODUCT USED FOR UNKNOWN INDICATION
     Dosage: 1 MG, ( 6 (SIX) HOURS AS NEEDED)
     Route: 048
  10. MICROZIDE [Concomitant]
     Active Substance: HYDROCHLOROTHIAZIDE
     Indication: PRODUCT USED FOR UNKNOWN INDICATION
     Dosage: 12.5 MG, QD
     Route: 048
  11. MEGACE [Concomitant]
     Active Substance: MEGESTROL ACETATE
     Indication: PRODUCT USED FOR UNKNOWN INDICATION
     Dosage: 40 MG, QD
     Route: 048
  12. ABILIFY [Suspect]
     Active Substance: ARIPIPRAZOLE
     Indication: MAJOR DEPRESSION
  13. ASPIRIN. [Concomitant]
     Active Substance: ASPIRIN
     Indication: PRODUCT USED FOR UNKNOWN INDICATION
     Dosage: 81 MG, QD
     Route: 048
  14. ATIVAN [Concomitant]
     Active Substance: LORAZEPAM
     Indication: ANXIETY
     Dosage: 0.5 MG, UNK (EVERY 6 (SIX) HOURS AS NEEDED)
     Route: 048
  15. ABILIFY [Suspect]
     Active Substance: ARIPIPRAZOLE
     Indication: ANXIETY
     Dosage: UNK
     Route: 065
     Dates: start: 2010, end: 2016
  16. PHENERGAN [Concomitant]
     Active Substance: PROMETHAZINE HYDROCHLORIDE
     Indication: PRODUCT USED FOR UNKNOWN INDICATION
     Dosage: 25 MG, QD
     Route: 048
  17. ALPRAZOLAM. [Concomitant]
     Active Substance: ALPRAZOLAM
     Indication: INSOMNIA
     Dosage: 1 MG, QD (AS NEEDED)
     Route: 048

REACTIONS (19)
  - Red cell distribution width decreased [Unknown]
  - Economic problem [Unknown]
  - Blood bilirubin decreased [Unknown]
  - Red blood cell count decreased [Unknown]
  - Depression [Recovered/Resolved]
  - Blood calcium decreased [Unknown]
  - Obsessive-compulsive disorder [Recovered/Resolved]
  - Compulsive shopping [Recovered/Resolved]
  - Vomiting [Unknown]
  - Haemoglobin decreased [Unknown]
  - Nausea [Unknown]
  - Endocarditis [Unknown]
  - Haematocrit decreased [Unknown]
  - Blood triglycerides increased [Unknown]
  - Product use in unapproved indication [Unknown]
  - Mean cell volume decreased [Unknown]
  - Gambling disorder [Recovered/Resolved]
  - White blood cell count decreased [Unknown]
  - Syncope [Unknown]

NARRATIVE: CASE EVENT DATE: 2010
